FAERS Safety Report 11217773 (Version 1)
Quarter: 2015Q2

REPORT INFORMATION
  Report Type: Spontaneous
  Country: US (occurrence: None)
  Receive Date: 20150623
  Receipt Date: 20150623
  Transmission Date: 20150821
  Serious: Yes (Hospitalization)
  Sender: FDA-Public Use
  Company Number: KAD201506-001803

PATIENT
  Age: 65 Year
  Sex: Male
  Weight: 60.33 kg

DRUGS (2)
  1. VIEKIRA PAK [Suspect]
     Active Substance: DASABUVIR\OMBITASVIR\PARITAPREVIR\RITONAVIR
     Indication: HEPATITIS C
     Dosage: THREE AND ONE
     Route: 048
     Dates: end: 20150602
  2. RIBAVIRIN. [Suspect]
     Active Substance: RIBAVIRIN
     Indication: HEPATITIS C
     Route: 048
     Dates: end: 20150507

REACTIONS (5)
  - Ascites [None]
  - Haemoglobin decreased [None]
  - Jaundice [None]
  - Hepatic cyst [None]
  - Hepatic encephalopathy [None]

NARRATIVE: CASE EVENT DATE: 201504
